FAERS Safety Report 24373138 (Version 1)
Quarter: 2024Q3

REPORT INFORMATION
  Report Type: Spontaneous
  Country: US (occurrence: US)
  Receive Date: 20240927
  Receipt Date: 20240927
  Transmission Date: 20241017
  Serious: No
  Sender: Thea Pharma
  Company Number: US-THEA-2023001305

PATIENT
  Sex: Male

DRUGS (1)
  1. AZASITE [Suspect]
     Active Substance: AZITHROMYCIN MONOHYDRATE
     Indication: Ocular rosacea
     Dosage: RIGHT EYE
     Route: 047
     Dates: end: 20230718

REACTIONS (2)
  - Off label use [Unknown]
  - Product packaging quantity issue [Unknown]

NARRATIVE: CASE EVENT DATE: 20230101
